FAERS Safety Report 17888269 (Version 1)
Quarter: 2020Q2

REPORT INFORMATION
  Report Type: Spontaneous
  Country: US (occurrence: US)
  Receive Date: 20200611
  Receipt Date: 20200611
  Transmission Date: 20200714
  Serious: No
  Sender: FDA-Public Use
  Company Number: None

PATIENT
  Age: 60 Year
  Sex: Male
  Weight: 81.7 kg

DRUGS (10)
  1. TOCILIZUMAB. [Concomitant]
     Active Substance: TOCILIZUMAB
     Dates: start: 20200604, end: 20200604
  2. REMDESIVIR. [Suspect]
     Active Substance: REMDESIVIR
     Indication: COVID-19
     Route: 042
  3. PANTOPRAZOLE [Concomitant]
     Active Substance: PANTOPRAZOLE
     Dates: start: 20200605, end: 20200611
  4. REMDESIVIR. [Suspect]
     Active Substance: REMDESIVIR
     Indication: COVID-19
     Dosage: ?          OTHER FREQUENCY:ONCE;?
     Route: 042
  5. ADENOSINE. [Concomitant]
     Active Substance: ADENOSINE
     Dates: start: 20200605, end: 20200605
  6. APIXABAN [Concomitant]
     Active Substance: APIXABAN
     Dates: start: 20200606
  7. DILTIAZEM IV [Concomitant]
     Dates: start: 20200604, end: 20200604
  8. HEPARIN [Concomitant]
     Active Substance: HEPARIN SODIUM
     Dates: start: 20200604, end: 20200606
  9. AMIODARONE IV [Concomitant]
     Dates: start: 20200604, end: 20200606
  10. METOPROLOL. [Concomitant]
     Active Substance: METOPROLOL
     Dates: start: 20200606

REACTIONS (2)
  - Alanine aminotransferase increased [None]
  - Aspartate aminotransferase increased [None]

NARRATIVE: CASE EVENT DATE: 20200608
